FAERS Safety Report 4825599-2 (Version None)
Quarter: 2005Q4

REPORT INFORMATION
  Report Type: 
  Country: None (occurrence: None)
  Receive Date: 20051111
  Receipt Date: 20051010
  Transmission Date: 20060501
  Serious: No
  Sender: FDA-Public Use
  Company Number: US-GLAXOSMITHKLINE-A0577691A

PATIENT
  Age: 67 Year
  Sex: Male

DRUGS (6)
  1. AVODART [Suspect]
     Indication: BENIGN PROSTATIC HYPERPLASIA
     Route: 048
  2. FLOMAX [Concomitant]
  3. AVAPRO [Concomitant]
  4. MINIPRESS [Concomitant]
  5. TOPROL-XL [Concomitant]
  6. LIPITOR [Concomitant]

REACTIONS (1)
  - DYSPEPSIA [None]
